FAERS Safety Report 7441102-5 (Version None)
Quarter: 2011Q2

REPORT INFORMATION
  Report Type: 
  Country: None (occurrence: None)
  Receive Date: 20110427
  Receipt Date: 20110418
  Transmission Date: 20111010
  Serious: Yes (Life-Threatening, Hospitalization, Other)
  Sender: FDA-Public Use
  Company Number: US-BAYER-2010-005354

PATIENT

DRUGS (9)
  1. ASPIRIN [Concomitant]
  2. LIPITOR [Concomitant]
  3. ALBUTEROL [Concomitant]
     Dosage: UNK UNK, PRN
  4. AVELOX [Suspect]
     Indication: PNEUMONIA
     Dosage: DAILY DOSE 200 MG
     Route: 048
     Dates: start: 20100801
  5. HYDROCORTISONE [Concomitant]
  6. SYNTHROID [Concomitant]
  7. PRILOSEC [Concomitant]
  8. DILANTIN [Concomitant]
  9. SPIRIVA [Concomitant]

REACTIONS (11)
  - HYPERSENSITIVITY [None]
  - MULTI-ORGAN FAILURE [None]
  - PALPITATIONS [None]
  - HYPOTENSION [None]
  - DIARRHOEA [None]
  - DYSPNOEA [None]
  - VOMITING [None]
  - HEART RATE INCREASED [None]
  - NAUSEA [None]
  - OEDEMA [None]
  - ATRIAL FIBRILLATION [None]
